FAERS Safety Report 4788309-3 (Version None)
Quarter: 2005Q4

REPORT INFORMATION
  Report Type: 
  Country: None (occurrence: None)
  Receive Date: 20051003
  Receipt Date: 20050922
  Transmission Date: 20060501
  Serious: Yes (Hospitalization, Other)
  Sender: FDA-Public Use
  Company Number: 2003119654

PATIENT
  Age: 72 Year
  Sex: Female
  Weight: 90.7194 kg

DRUGS (27)
  1. LIPITOR [Suspect]
     Indication: BLOOD CHOLESTEROL
     Dosage: 10 MG , ORAL
     Route: 048
     Dates: start: 20030901, end: 20040327
  2. ZOLOFT [Suspect]
     Indication: FIBROMYALGIA
     Dosage: 50 MG (1 IN 1 D), ORAL
     Route: 048
     Dates: start: 20040101
  3. ZOLOFT [Suspect]
     Indication: SERUM SEROTONIN INCREASED
     Dosage: 50 MG (1 IN 1 D), ORAL
     Route: 048
     Dates: start: 20040101
  4. CELEBREX [Suspect]
     Indication: ARTHRITIS
  5. CELEBREX [Suspect]
     Indication: FIBROMYALGIA
  6. ZETIA [Suspect]
     Indication: ILL-DEFINED DISORDER
  7. LIDOCAINE HCL INJ [Suspect]
     Indication: ENDODONTIC PROCEDURE
     Dates: start: 20050330
  8. WARFARIN SODIUM [Suspect]
     Indication: ILL-DEFINED DISORDER
  9. TYLENOL EXTENDED RELIEF (PARACETAMOL) [Concomitant]
  10. TENORMIN [Concomitant]
  11. CARDIZEM CD [Concomitant]
  12. HYDROCHLOROTHIAZIDE/TRIAMTERENE (HYDROCHLOROTHIAZIDE, TRIAMTERENE) [Concomitant]
  13. CLONOPIN (CLONAZEPAM) [Concomitant]
  14. VITAMINS (VITAMINS) [Concomitant]
  15. CALCIUM (CALCIUM) [Concomitant]
  16. VITAMIN E (VITAMINE E) [Concomitant]
  17. FLONASE [Concomitant]
  18. CLARITIN [Concomitant]
  19. TYLENOL ARTHRITIS (PARACETAMOL) [Concomitant]
  20. IBUPROFEN [Concomitant]
  21. ACETYLSALICYLIC ACID SRT [Concomitant]
  22. ALL OTHER THERAPEUTIC PRODUCTS (ALL OTHER THERAPEUTIC PRODUCTS) [Concomitant]
  23. ZINC (ZINC) [Concomitant]
  24. OTHER ANTIHYPERTENSIVES (OTHER ANTIHYPERTENSIVES) [Concomitant]
  25. COUMADIN [Concomitant]
  26. ALLEGRA [Concomitant]
  27. DRUG UNSPECIFIED [Concomitant]

REACTIONS (32)
  - AGITATION [None]
  - AMNESIA [None]
  - ANTIDEPRESSANT DRUG LEVEL INCREASED [None]
  - ANXIETY [None]
  - ASTHENIA [None]
  - ATRIAL FIBRILLATION [None]
  - BRONCHITIS [None]
  - CONFUSIONAL STATE [None]
  - CONTUSION [None]
  - DRUG INEFFECTIVE [None]
  - DRUG TOLERANCE DECREASED [None]
  - DYSPNOEA [None]
  - ENDODONTIC PROCEDURE [None]
  - ENZYME ABNORMALITY [None]
  - FEELING ABNORMAL [None]
  - FIBROMYALGIA [None]
  - GASTROINTESTINAL DISORDER [None]
  - HERNIA REPAIR [None]
  - HYPERSENSITIVITY [None]
  - LOGORRHOEA [None]
  - MUSCLE DISORDER [None]
  - MUSCLE SWELLING [None]
  - ORAL SURGERY [None]
  - PULMONARY OEDEMA [None]
  - SERUM SEROTONIN DECREASED [None]
  - SERUM SEROTONIN INCREASED [None]
  - SLEEP DISORDER [None]
  - SPEECH DISORDER [None]
  - SYNCOPE [None]
  - THERMAL BURN [None]
  - TREMOR [None]
  - WEIGHT FLUCTUATION [None]
